FAERS Safety Report 4617869-8 (Version None)
Quarter: 2005Q1

REPORT INFORMATION
  Report Type: 
  Country: None (occurrence: None)
  Receive Date: 20050322
  Receipt Date: 20050304
  Transmission Date: 20050727
  Serious: Yes (Hospitalization)
  Sender: FDA-Public Use
  Company Number: 397393

PATIENT
  Age: 24 Year
  Sex: Female

DRUGS (4)
  1. LOXEN (NICARDIPINE) [Suspect]
     Indication: UTERINE CONTRACTIONS DURING PREGNANCY
     Dosage: 3 + 80 MG 1 X PER HOUR / INTRAVENOUS
     Route: 042
     Dates: start: 20041210, end: 20041219
  2. LOXEN (NICARDIPINE) [Suspect]
     Indication: UTERINE CONTRACTIONS DURING PREGNANCY
     Dosage: 3 + 80 MG 1 X PER HOUR / INTRAVENOUS
     Route: 042
     Dates: start: 20041220, end: 20041223
  3. AMOXICILLIN/BLAVULANIC ACID        (AMOXICILLIN/CLAVULANIC ACID) [Concomitant]
  4. BETAMETHASONE [Concomitant]

REACTIONS (4)
  - BLOOD PH INCREASED [None]
  - DRUG EXPOSURE DURING PREGNANCY [None]
  - PULMONARY OEDEMA [None]
  - PYREXIA [None]
